FAERS Safety Report 5382533-7 (Version None)
Quarter: 2007Q3

REPORT INFORMATION
  Report Type: 
  Country: None (occurrence: None)
  Receive Date: 20070710
  Receipt Date: 20070702
  Transmission Date: 20080115
  Serious: Yes (Other)
  Sender: FDA-Public Use
  Company Number: PHBS2007ES11134

PATIENT
  Age: 30 Year
  Sex: Male

DRUGS (1)
  1. TEGRETOL [Suspect]
     Dosage: 1 TABLET, BID
     Route: 048

REACTIONS (3)
  - DRUG LEVEL DECREASED [None]
  - EPILEPSY [None]
  - LOSS OF CONSCIOUSNESS [None]
